FAERS Safety Report 9975933 (Version 1)
Quarter: 2014Q1

REPORT INFORMATION
  Report Type: Report from Study
  Country: US (occurrence: US)
  Receive Date: 20140306
  Receipt Date: 20140306
  Transmission Date: 20141002
  Serious: No
  Sender: FDA-Public Use
  Company Number: US-ABBVIE-13P-163-1160593-00

PATIENT
  Age: 56 Year
  Sex: Female

DRUGS (23)
  1. HUMIRA [Suspect]
     Indication: RHEUMATOID ARTHRITIS
     Dates: start: 20131011
  2. METHOTREXATE [Concomitant]
     Indication: PRODUCT USED FOR UNKNOWN INDICATION
  3. LYRICA [Concomitant]
     Indication: FIBROMYALGIA
  4. ADVAIR [Concomitant]
     Indication: ASTHMA
  5. SPIRIVA [Concomitant]
     Indication: ASTHMA
  6. NORVASC [Concomitant]
     Indication: REYE^S SYNDROME
  7. MELOXICAM [Concomitant]
     Indication: RHEUMATOID ARTHRITIS
  8. PREDNISONE [Concomitant]
     Indication: PRODUCT USED FOR UNKNOWN INDICATION
  9. CYMBALTA [Concomitant]
     Indication: DEPRESSION
     Dosage: 1 EACH 60MG AND 30MG
  10. LUNESTA [Concomitant]
     Indication: INSOMNIA
     Dosage: AT SLEEP
  11. TOPAMAX [Concomitant]
     Indication: MIGRAINE
  12. SOMA [Concomitant]
     Indication: MYALGIA
  13. REMERON [Concomitant]
     Indication: PRODUCT USED FOR UNKNOWN INDICATION
     Dosage: AT SLEEP
  14. SYNTHROID [Concomitant]
     Indication: HYPOTHYROIDISM
  15. PROPANOLOL [Concomitant]
     Indication: HYPERTENSION
  16. LORAZEPAM [Concomitant]
     Indication: PRODUCT USED FOR UNKNOWN INDICATION
     Dosage: AT SLEEP
  17. RITALIN [Concomitant]
     Indication: ATTENTION DEFICIT/HYPERACTIVITY DISORDER
  18. VISTARIL [Concomitant]
     Indication: GASTRIC DISORDER
  19. PROTONIX [Concomitant]
     Indication: GASTROOESOPHAGEAL REFLUX DISEASE
     Dosage: 40MG DAILY
  20. FOLIC ACID [Concomitant]
     Indication: RED BLOOD CELL COUNT
     Dosage: 1MG DAILY
  21. NASONEX [Concomitant]
     Indication: HYPERSENSITIVITY
  22. RESTASIS [Concomitant]
     Indication: DRY EYE
  23. OXYCODONE [Concomitant]
     Indication: PAIN

REACTIONS (3)
  - Fatigue [Not Recovered/Not Resolved]
  - Nausea [Not Recovered/Not Resolved]
  - Abdominal pain upper [Not Recovered/Not Resolved]
